FAERS Safety Report 6614940-6 (Version None)
Quarter: 2010Q1

REPORT INFORMATION
  Report Type: 
  Country: None (occurrence: None)
  Receive Date: 20100305
  Receipt Date: 20100115
  Transmission Date: 20100710
  Serious: Yes (Other)
  Sender: FDA-Public Use
  Company Number: US-JNJFOC-20091101347

PATIENT
  Age: 52 Year
  Sex: Male

DRUGS (3)
  1. LEVAQUIN [Suspect]
     Indication: DIVERTICULITIS
     Route: 048
     Dates: start: 20090401
  2. CIPROFLOXACIN [Suspect]
     Indication: DIVERTICULITIS
     Route: 048
  3. FLAGYL [Concomitant]
     Route: 065

REACTIONS (2)
  - ADVERSE EVENT [None]
  - TENDON RUPTURE [None]
